FAERS Safety Report 14196002 (Version 2)
Quarter: 2017Q4

REPORT INFORMATION
  Report Type: Not Available
  Country: None (occurrence: US)
  Receive Date: 20171116
  Receipt Date: 20171116
  Transmission Date: 20180321
  Serious: No
  Sender: FDA-Public Use
  Company Number: US-AKORN-67034

PATIENT
  Age: 82 Year
  Sex: Female

DRUGS (1)
  1. CLOBETASOL PROPIONATE OINTMENT [Suspect]
     Active Substance: CLOBETASOL PROPIONATE

REACTIONS (2)
  - Pruritus [Not Recovered/Not Resolved]
  - Skin burning sensation [Not Recovered/Not Resolved]
